FAERS Safety Report 16922778 (Version 1)
Quarter: 2019Q4

REPORT INFORMATION
  Report Type: Spontaneous
  Country: US (occurrence: US)
  Receive Date: 20191016
  Receipt Date: 20191016
  Transmission Date: 20200122
  Serious: No
  Sender: FDA-Public Use
  Company Number: US-ADVANZ PHARMA-201909000711

PATIENT

DRUGS (1)
  1. PANRETIN [Suspect]
     Active Substance: ALITRETINOIN
     Indication: KAPOSI^S SARCOMA
     Dosage: BID, TWICE DAILY (GEL)
     Route: 061

REACTIONS (4)
  - Erythema [Unknown]
  - Pruritus [Unknown]
  - Skin irritation [Unknown]
  - Skin exfoliation [Unknown]
